FAERS Safety Report 10516920 (Version 1)
Quarter: 2014Q4

REPORT INFORMATION
  Report Type: Spontaneous
  Country: US (occurrence: None)
  Receive Date: 20141003
  Receipt Date: 20141003
  Transmission Date: 20150528
  Serious: Yes (Other)
  Sender: FDA-Public Use
  Company Number: 1423109

PATIENT
  Age: 50 Year
  Sex: Female
  Weight: 81.65 kg

DRUGS (3)
  1. RIBASPHERE (BIBAVIRIN) [Concomitant]
  2. PEGASYS [Suspect]
     Active Substance: PEGINTERFERON ALFA-2A
     Indication: HEPATITIS
     Dosage: 180 UNIT NOT REPORTED
     Route: 058
     Dates: start: 20140618
  3. SOLVALDI (SOFOSBUVIR) [Concomitant]

REACTIONS (1)
  - Vomiting [None]

NARRATIVE: CASE EVENT DATE: 20140619
